FAERS Safety Report 13303927 (Version 1)
Quarter: 2017Q1

REPORT INFORMATION
  Report Type: Not Available
  Country: AM (occurrence: None)
  Receive Date: 20170307
  Receipt Date: 20170307
  Transmission Date: 20170428
  Serious: Yes (Other)
  Sender: FDA-Public Use
  Company Number: --2017-IR-000003

PATIENT
  Age: 62 Year
  Sex: Female

DRUGS (2)
  1. ZOLPIDEM TARTRATE BRAND UNSPECIFIED (VIVIMED) [Suspect]
     Active Substance: ZOLPIDEM TARTRATE
     Indication: INSOMNIA
     Dosage: 10 MILLIGRAM
  2. OPIUM. [Concomitant]
     Active Substance: OPIUM
     Indication: EUPHORIC MOOD

REACTIONS (15)
  - Dizziness [Unknown]
  - Agitation [Unknown]
  - Irritability [Unknown]
  - Restlessness [None]
  - Asthenia [Unknown]
  - Increased appetite [Unknown]
  - Chills [Unknown]
  - Impatience [Unknown]
  - Aggression [Unknown]
  - Anxiety [Unknown]
  - Drug dependence [Unknown]
  - Drug abuse [None]
  - Withdrawal syndrome [None]
  - Insomnia [Unknown]
  - Crying [Unknown]
